FAERS Safety Report 4709225-9 (Version None)
Quarter: 2005Q3

REPORT INFORMATION
  Report Type: 
  Country: None (occurrence: None)
  Receive Date: 20050706
  Receipt Date: 20050621
  Transmission Date: 20060218
  Serious: Yes (Hospitalization)
  Sender: FDA-Public Use
  Company Number: RENA-11353

PATIENT
  Age: 49 Year
  Sex: Male
  Weight: 55 kg

DRUGS (14)
  1. RENAGEL [Suspect]
     Indication: HYPERPHOSPHATAEMIA
     Dosage: 0.75 G TID PO
     Route: 048
     Dates: start: 20041207
  2. RENAGEL [Suspect]
     Indication: HYPERPHOSPHATAEMIA
     Dosage: 1 G TID PO
     Route: 048
     Dates: start: 20041122, end: 20041123
  3. RENAGEL [Suspect]
     Indication: HYPERPHOSPHATAEMIA
     Dosage: 0.75 G TID PO
     Route: 048
     Dates: start: 20041106, end: 20041121
  4. RENAGEL [Suspect]
     Indication: HYPERPHOSPHATAEMIA
     Dosage: 0.5 G TID PO
     Route: 048
     Dates: start: 20041026, end: 20041105
  5. RENAGEL [Suspect]
     Indication: HYPERPHOSPHATAEMIA
     Dosage: 0.25 G TID PO
     Route: 048
     Dates: start: 20041012, end: 20041025
  6. MS CONTIN [Suspect]
     Dates: start: 20041120, end: 20041123
  7. CALTAN [Concomitant]
  8. PURSENNID [Concomitant]
  9. ALLOPURINOL [Concomitant]
  10. ALFAROL [Concomitant]
  11. DORNER [Concomitant]
  12. IPD [Concomitant]
  13. ALLELOCK [Concomitant]
  14. HERLAT L [Concomitant]

REACTIONS (1)
  - ILEUS [None]
